FAERS Safety Report 8941833 (Version 3)
Quarter: 2013Q4

REPORT INFORMATION
  Report Type: Spontaneous
  Country: FI (occurrence: FI)
  Receive Date: 20121203
  Receipt Date: 20131029
  Transmission Date: 20140711
  Serious: Yes (Hospitalization)
  Sender: FDA-Public Use
  Company Number: FI-ROCHE-1153062

PATIENT
  Sex: Female
  Weight: 96 kg

DRUGS (10)
  1. ROACTEMRA [Suspect]
     Indication: RHEUMATOID ARTHRITIS
     Dosage: 8MG/KG
     Route: 065
     Dates: start: 20090923, end: 20121117
  2. ROACTEMRA [Suspect]
     Route: 065
     Dates: start: 201001, end: 20121017
  3. SALAZOSULFAPYRIDINE [Suspect]
     Indication: RHEUMATOID ARTHRITIS
     Route: 048
     Dates: start: 20010121
  4. METHOTREXATE [Suspect]
     Indication: RHEUMATOID ARTHRITIS
     Route: 048
     Dates: start: 20090126, end: 20121104
  5. PREDNISOLON [Suspect]
     Indication: RHEUMATOID ARTHRITIS
     Route: 048
  6. FOLIC ACID [Concomitant]
     Indication: RHEUMATOID ARTHRITIS
     Route: 065
     Dates: end: 20121103
  7. FOLIC ACID [Concomitant]
     Route: 065
  8. MOBIC [Concomitant]
     Indication: INFLAMMATORY PAIN
     Route: 065
  9. PARACETAMOL [Concomitant]
     Dosage: 500-1000 MG
     Route: 065
  10. OBSIDAN (FERROUS GLYCINE SULFATE) [Concomitant]
     Route: 065

REACTIONS (3)
  - Ectopic pregnancy [Recovered/Resolved]
  - Exposure during pregnancy [Unknown]
  - Blood cholesterol increased [Unknown]
